FAERS Safety Report 18869247 (Version 2)
Quarter: 2021Q1

REPORT INFORMATION
  Report Type: Report from Study
  Country: CA (occurrence: CA)
  Receive Date: 20210209
  Receipt Date: 20210225
  Transmission Date: 20210420
  Serious: Yes (Hospitalization)
  Sender: FDA-Public Use
  Company Number: CA-JNJFOC-20201124602

PATIENT
  Age: 15 Year
  Sex: Female

DRUGS (11)
  1. SELEXIPAG [Suspect]
     Active Substance: SELEXIPAG
     Dosage: AT BED TIME
     Route: 048
  2. TINZAPARIN [Concomitant]
     Active Substance: TINZAPARIN
  3. SELEXIPAG [Suspect]
     Active Substance: SELEXIPAG
     Indication: PULMONARY HYPERTENSION
     Route: 048
     Dates: start: 20201105, end: 20210120
  4. SELEXIPAG [Suspect]
     Active Substance: SELEXIPAG
     Route: 048
  5. FUROSEMIDE. [Concomitant]
     Active Substance: FUROSEMIDE
  6. NADOLOL. [Concomitant]
     Active Substance: NADOLOL
  7. SELEXIPAG [Suspect]
     Active Substance: SELEXIPAG
     Route: 048
     Dates: end: 20210120
  8. BOSENTAN. [Suspect]
     Active Substance: BOSENTAN
     Route: 048
  9. LEVONOX [Concomitant]
     Active Substance: ENOXAPARIN
  10. BOSENTAN. [Suspect]
     Active Substance: BOSENTAN
     Indication: PULMONARY HYPERTENSION
     Route: 048
     Dates: start: 20200827
  11. ESCITALOPRAM [Concomitant]
     Active Substance: ESCITALOPRAM OXALATE

REACTIONS (8)
  - Drug intolerance [Unknown]
  - Off label use [Unknown]
  - Wrong technique in product usage process [Unknown]
  - Affective disorder [Not Recovered/Not Resolved]
  - Product use issue [Unknown]
  - Therapy change [Unknown]
  - Headache [Not Recovered/Not Resolved]
  - Malaise [Unknown]

NARRATIVE: CASE EVENT DATE: 20201110
